FAERS Safety Report 21228889 (Version 2)
Quarter: 2022Q3

REPORT INFORMATION
  Report Type: Spontaneous
  Country: JP (occurrence: JP)
  Receive Date: 20220818
  Receipt Date: 20220926
  Transmission Date: 20221027
  Serious: Yes (Hospitalization, Other)
  Sender: FDA-Public Use
  Company Number: JP-ELI_LILLY_AND_COMPANY-JP202208004311

PATIENT
  Age: 75 Year
  Sex: Male

DRUGS (1)
  1. RETEVMO [Suspect]
     Active Substance: SELPERCATINIB
     Indication: Medullary thyroid cancer
     Dosage: UNK
     Route: 048

REACTIONS (7)
  - Inflammation [Unknown]
  - Renal disorder [Recovered/Resolved]
  - Respiratory failure [Recovered/Resolved]
  - Pyrexia [Unknown]
  - Hypersensitivity [Recovering/Resolving]
  - Liver disorder [Unknown]
  - Platelet count decreased [Unknown]
